FAERS Safety Report 10003748 (Version 1)
Quarter: 2014Q1

REPORT INFORMATION
  Report Type: Spontaneous
  Country: US (occurrence: US)
  Receive Date: 20140312
  Receipt Date: 20140312
  Transmission Date: 20141002
  Serious: Yes (Other)
  Sender: FDA-Public Use
  Company Number: US-ABBVIE-13P-163-1072156-00

PATIENT
  Age: 39 Year
  Sex: Male

DRUGS (5)
  1. DEPAKOTE [Suspect]
     Indication: PRODUCT USED FOR UNKNOWN INDICATION
     Route: 065
     Dates: start: 201001, end: 201301
  2. LAMICTAL [Suspect]
     Indication: BIPOLAR DISORDER
     Route: 048
     Dates: start: 20121221
  3. QUETIAPINE [Concomitant]
     Indication: PRODUCT USED FOR UNKNOWN INDICATION
  4. CLONAZEPAM [Concomitant]
     Indication: PRODUCT USED FOR UNKNOWN INDICATION
  5. ALPRAZOLAM [Concomitant]
     Indication: PRODUCT USED FOR UNKNOWN INDICATION

REACTIONS (3)
  - Bone marrow failure [Recovering/Resolving]
  - Bone marrow failure [Not Recovered/Not Resolved]
  - Neutrophil count decreased [Not Recovered/Not Resolved]
